FAERS Safety Report 24901256 (Version 4)
Quarter: 2025Q2

REPORT INFORMATION
  Report Type: Spontaneous
  Country: US (occurrence: US)
  Receive Date: 20250129
  Receipt Date: 20250521
  Transmission Date: 20250716
  Serious: Yes (Other)
  Sender: PFIZER
  Company Number: US-PFIZER INC-PV202400039673

PATIENT
  Age: 81 Year
  Sex: Female
  Weight: 62.766 kg

DRUGS (2)
  1. BRAFTOVI [Suspect]
     Active Substance: ENCORAFENIB
     Indication: Colon cancer metastatic
     Dosage: 4 CAPSULES BY MOUTH ONCE DAILY/SAME TIME DAILY
     Route: 048
  2. ERBITUX [Concomitant]
     Active Substance: CETUXIMAB
     Indication: Colon cancer metastatic

REACTIONS (4)
  - Second primary malignancy [Unknown]
  - Squamous cell carcinoma [Unknown]
  - Blindness [Unknown]
  - Mydriasis [Unknown]
